FAERS Safety Report 8936528 (Version 1)
Quarter: 2012Q4

REPORT INFORMATION
  Report Type: 
  Country: GB (occurrence: GB)
  Receive Date: 20121130
  Receipt Date: 20121130
  Transmission Date: 20130627
  Serious: Yes (Other)
  Sender: FDA-Public Use
  Company Number: GB-PFIZER INC-2012296233

PATIENT
  Sex: Male

DRUGS (1)
  1. SUTENT [Suspect]
     Indication: KIDNEY CANCER

REACTIONS (8)
  - Aphagia [Unknown]
  - Abdominal pain upper [Unknown]
  - Eye swelling [Unknown]
  - Insomnia [Unknown]
  - Fatigue [Unknown]
  - Nausea [Unknown]
  - Feeling cold [Unknown]
  - Cough [Unknown]
